FAERS Safety Report 7896427-6 (Version None)
Quarter: 2011Q4

REPORT INFORMATION
  Report Type: 
  Country: None (occurrence: None)
  Receive Date: 20111106
  Receipt Date: 20110909
  Transmission Date: 20120403
  Serious: Yes (Other)
  Sender: FDA-Public Use
  Company Number: US-AMGEN-USASP2011046289

PATIENT
  Age: 51 Year
  Sex: Female

DRUGS (1)
  1. ENBREL [Suspect]
     Indication: PSORIATIC ARTHROPATHY
     Dosage: 25 MG, 2 TIMES/WK
     Dates: start: 20030201, end: 20110825

REACTIONS (5)
  - TOOTH INFECTION [None]
  - LOWER RESPIRATORY TRACT INFECTION [None]
  - CELLULITIS [None]
  - TOOTH LOSS [None]
  - PYREXIA [None]
